FAERS Safety Report 4503554-X (Version None)
Quarter: 2004Q4

REPORT INFORMATION
  Report Type: 
  Country: None (occurrence: None)
  Receive Date: 20041112
  Receipt Date: 20041102
  Transmission Date: 20050328
  Serious: Yes (Hospitalization)
  Sender: FDA-Public Use
  Company Number: 2004233925JP

PATIENT
  Age: 62 Year
  Sex: Female

DRUGS (13)
  1. CABERGOLINE [Suspect]
     Indication: PARKINSON'S DISEASE
     Dosage: 0.25 MG/DAY, ORAL; 0.5 MG/DAY, ORAL; 2.5 MG/DAY; ORAL; 3 MG/DAY, ORAL; ORAL
     Route: 048
     Dates: end: 20040731
  2. CABERGOLINE [Suspect]
     Indication: PARKINSON'S DISEASE
     Dosage: 0.25 MG/DAY, ORAL; 0.5 MG/DAY, ORAL; 2.5 MG/DAY; ORAL; 3 MG/DAY, ORAL; ORAL
     Route: 048
     Dates: start: 20030406
  3. CABERGOLINE [Suspect]
     Indication: PARKINSON'S DISEASE
     Dosage: 0.25 MG/DAY, ORAL; 0.5 MG/DAY, ORAL; 2.5 MG/DAY; ORAL; 3 MG/DAY, ORAL; ORAL
     Route: 048
     Dates: start: 20040501
  4. CABERGOLINE [Suspect]
     Indication: PARKINSON'S DISEASE
     Dosage: 0.25 MG/DAY, ORAL; 0.5 MG/DAY, ORAL; 2.5 MG/DAY; ORAL; 3 MG/DAY, ORAL; ORAL
     Route: 048
     Dates: start: 20040602
  5. CABERGOLINE [Suspect]
     Indication: PARKINSON'S DISEASE
     Dosage: 0.25 MG/DAY, ORAL; 0.5 MG/DAY, ORAL; 2.5 MG/DAY; ORAL; 3 MG/DAY, ORAL; ORAL
     Route: 048
     Dates: start: 20040709
  6. DOPS           (DROXIDOPA) [Suspect]
     Indication: ORTHOSTATIC HYPOTENSION
     Dosage: 200MG/DAY, ORAL; 400MG/DAY
     Route: 048
     Dates: start: 20030517
  7. DOPS           (DROXIDOPA) [Suspect]
     Indication: ORTHOSTATIC HYPOTENSION
     Dosage: 200MG/DAY, ORAL; 400MG/DAY
     Route: 048
     Dates: start: 20040420
  8. CARBIDOPA AND LEVODOPA [Suspect]
     Indication: PARKINSON'S DISEASE
     Dosage: 100 MG, QID, ORAL; 300 MG/DAY, ORAL
     Route: 048
     Dates: start: 20030621
  9. CARBIDOPA AND LEVODOPA [Suspect]
     Indication: PARKINSON'S DISEASE
     Dosage: 100 MG, QID, ORAL; 300 MG/DAY, ORAL
     Route: 048
     Dates: start: 20040718
  10. SENNOSIDE A+B (SENNOSIDE A+B) [Concomitant]
  11. MAGNESIUM OXIDE [Concomitant]
  12. MUCOSTA (REBAMIPIDE) [Concomitant]
  13. PANTOSIN (PANTETHINE) [Concomitant]

REACTIONS (11)
  - ACCOMMODATION DISORDER [None]
  - ACTIVITIES OF DAILY LIVING IMPAIRED [None]
  - ALANINE AMINOTRANSFERASE INCREASED [None]
  - ASPARTATE AMINOTRANSFERASE INCREASED [None]
  - BLOOD CREATINE PHOSPHOKINASE INCREASED [None]
  - BLOOD LACTATE DEHYDROGENASE INCREASED [None]
  - CONSTIPATION [None]
  - HAEMATURIA [None]
  - MUSCLE DISORDER [None]
  - MUSCLE RIGIDITY [None]
  - MYOGLOBINURIA [None]
